FAERS Safety Report 23167690 (Version 3)
Quarter: 2024Q1

REPORT INFORMATION
  Report Type: Spontaneous
  Country: US (occurrence: US)
  Receive Date: 20231109
  Receipt Date: 20240206
  Transmission Date: 20240410
  Serious: No
  Sender: FDA-Public Use
  Company Number: US-SANOFI-01829929

PATIENT
  Age: 74 Year
  Sex: Female

DRUGS (2)
  1. DUPIXENT [Suspect]
     Active Substance: DUPILUMAB
     Indication: Asthma
     Dosage: 600 MG, 1X
     Dates: start: 20231013, end: 20231013
  2. DALIRESP [Concomitant]
     Active Substance: ROFLUMILAST

REACTIONS (5)
  - Lethargy [Unknown]
  - Nausea [Unknown]
  - Peripheral swelling [Unknown]
  - Haematoma [Recovered/Resolved]
  - Lack of administration site rotation [Unknown]

NARRATIVE: CASE EVENT DATE: 20230101
